FAERS Safety Report 25587679 (Version 3)
Quarter: 2025Q3

REPORT INFORMATION
  Report Type: Spontaneous
  Country: US (occurrence: US)
  Receive Date: 20250721
  Receipt Date: 20250916
  Transmission Date: 20251021
  Serious: Yes (Other)
  Sender: NOVARTIS
  Company Number: US-002147023-NVSC2025US114571

PATIENT
  Age: 80 Year
  Sex: Male

DRUGS (2)
  1. PLUVICTO [Suspect]
     Active Substance: LUTETIUM LU-177 VIPIVOTIDE TETRAXETAN
     Indication: Product used for unknown indication
     Route: 042
     Dates: end: 20250210
  2. CAPIVASERTIB [Concomitant]
     Active Substance: CAPIVASERTIB
     Indication: Product used for unknown indication
     Dosage: 400 MG, BID
     Route: 048
     Dates: start: 20250715

REACTIONS (6)
  - Pneumonia [Unknown]
  - Lymphangitis [Unknown]
  - Fatigue [Unknown]
  - General physical health deterioration [Recovered/Resolved]
  - Dyspnoea exertional [Unknown]
  - Dyspnoea [Unknown]

NARRATIVE: CASE EVENT DATE: 20250201
